FAERS Safety Report 9695094 (Version 1)
Quarter: 2013Q4

REPORT INFORMATION
  Report Type: Report from Study
  Country: US (occurrence: US)
  Receive Date: 20131119
  Receipt Date: 20131119
  Transmission Date: 20140711
  Serious: Yes (Death)
  Sender: FDA-Public Use
  Company Number: PHEH2013US024073

PATIENT
  Age: 64 Year
  Sex: Male

DRUGS (15)
  1. GLEEVEC [Suspect]
     Indication: CHRONIC MYELOMONOCYTIC LEUKAEMIA
     Dosage: 400 MG, QD
     Route: 048
     Dates: start: 20100622
  2. ATENOLOL [Concomitant]
     Dosage: UNK UKN, UNK
  3. ASPIRIN [Concomitant]
     Dosage: UNK UKN, UNK
  4. AMLODIPINE [Concomitant]
     Dosage: UNK UKN, UNK
  5. CARVEDILOL [Concomitant]
     Dosage: UNK UKN, UNK
  6. CLOPIDOGREL [Concomitant]
     Dosage: UNK UKN, UNK
  7. FOLIC [Concomitant]
     Dosage: UNK UKN, UNK
  8. TAMSULOSIN [Concomitant]
     Dosage: UNK UKN, UNK
  9. VITAMIN B 12 [Concomitant]
     Dosage: UNK UKN, UNK
  10. VITAMIN D3 [Concomitant]
     Dosage: UNK UKN, UNK
  11. ALLOPURINOL [Concomitant]
     Dosage: UNK UKN, UNK
  12. NIASPAN [Concomitant]
     Dosage: UNK UKN, UNK
  13. FLUOXETINE HYDROCHLORIDE [Concomitant]
     Dosage: UNK UKN, UNK
  14. FLOMAX ^BOEHRINGER INGELHEIM^ [Concomitant]
     Dosage: UNK UKN, UNK
  15. DETROL LA [Concomitant]
     Dosage: UNK UKN, UNK

REACTIONS (2)
  - Bladder cancer [Fatal]
  - Second primary malignancy [Fatal]
